FAERS Safety Report 8064494-5 (Version None)
Quarter: 2012Q1

REPORT INFORMATION
  Report Type: 
  Country: None (occurrence: None)
  Receive Date: 20120123
  Receipt Date: 20120116
  Transmission Date: 20120608
  Serious: Yes (Other)
  Sender: FDA-Public Use
  Company Number: DE-ALLERGAN-1115650US

PATIENT
  Age: 70 Year
  Sex: Female

DRUGS (4)
  1. CLONID-OPHTAL [Concomitant]
  2. LUMIGAN [Suspect]
     Indication: GLAUCOMA
     Dosage: UNK
     Route: 047
     Dates: start: 20090301, end: 20110301
  3. AZOPT [Concomitant]
     Indication: GLAUCOMA
  4. BIMATOPROST AND TIMOLOL MALEATE [Suspect]
     Indication: GLAUCOMA
     Dosage: UNK
     Route: 047

REACTIONS (10)
  - COUGH [None]
  - SKIN HYPERPIGMENTATION [None]
  - DRUG INEFFECTIVE [None]
  - ENOPHTHALMOS [None]
  - DIPLOPIA [None]
  - BRADYCARDIA [None]
  - ARTHRALGIA [None]
  - EYE DISORDER [None]
  - VISUAL FIELD DEFECT [None]
  - GROWTH OF EYELASHES [None]
